FAERS Safety Report 15591549 (Version 1)
Quarter: 2018Q4

REPORT INFORMATION
  Report Type: Spontaneous
  Country: CN (occurrence: CN)
  Receive Date: 20181107
  Receipt Date: 20181107
  Transmission Date: 20190205
  Serious: Yes (Hospitalization)
  Sender: FDA-Public Use
  Company Number: CN-009507513-1811CHN002001

PATIENT
  Age: 77 Year
  Sex: Female
  Weight: 45 kg

DRUGS (2)
  1. INVANZ [Suspect]
     Active Substance: ERTAPENEM SODIUM
     Indication: URINARY TRACT INFECTION
     Dosage: 0.5 GRAM, QD
     Route: 041
     Dates: start: 20180924, end: 20180925
  2. SODIUM CHLORIDE. [Suspect]
     Active Substance: SODIUM CHLORIDE
     Indication: ELECTROLYTE IMBALANCE
     Dosage: 250 MILLILITER, QD
     Route: 041
     Dates: start: 20180924, end: 20180925

REACTIONS (3)
  - Speech disorder [Unknown]
  - Asthenia [Unknown]
  - Somnolence [Unknown]

NARRATIVE: CASE EVENT DATE: 20180925
